FAERS Safety Report 16678719 (Version 1)
Quarter: 2019Q3

REPORT INFORMATION
  Report Type: Report from Study
  Country: US (occurrence: US)
  Receive Date: 20190807
  Receipt Date: 20190807
  Transmission Date: 20191004
  Serious: Yes (Hospitalization)
  Sender: FDA-Public Use
  Company Number: PHHO2016US003246

PATIENT
  Age: 13 Year
  Sex: Male
  Weight: 48.2 kg

DRUGS (7)
  1. GSK1120212 [Suspect]
     Active Substance: TRAMETINIB
     Dosage: 1.5 MG, QD
     Route: 048
     Dates: start: 20190326, end: 20190326
  2. MELATONIN [Concomitant]
     Active Substance: MELATONIN
     Indication: SLEEP DISORDER
     Dosage: 6 MG, QHS
     Route: 048
     Dates: start: 20121001
  3. CITALOPRAM [Concomitant]
     Active Substance: CITALOPRAM HYDROBROMIDE
     Indication: ANXIETY
     Dosage: 20 MG, QD
     Route: 048
     Dates: start: 20150831
  4. DAYTRANA [Concomitant]
     Active Substance: METHYLPHENIDATE
     Indication: ATTENTION DEFICIT/HYPERACTIVITY DISORDER
     Dosage: 10 MG, QD
     Route: 061
     Dates: start: 20141111
  5. GSK1120212 [Suspect]
     Active Substance: TRAMETINIB
     Dosage: 1 MG, QD
     Route: 048
     Dates: start: 20160310, end: 20160330
  6. QUETIAPINE. [Concomitant]
     Active Substance: QUETIAPINE
     Indication: ANXIETY
     Dosage: 25 MG, TID
     Route: 048
     Dates: start: 20141120
  7. GSK1120212 [Suspect]
     Active Substance: TRAMETINIB
     Indication: GLIOMA
     Dosage: 1.5 MG, QD
     Route: 048
     Dates: start: 20151014, end: 20160219

REACTIONS (6)
  - Arthritis infective [Recovered/Resolved]
  - Pyrexia [Recovered/Resolved]
  - Skin infection [Recovered/Resolved]
  - Arthritis infective [Recovered/Resolved]
  - Hypoxia [Recovered/Resolved]
  - Arthritis infective [Recovered/Resolved]

NARRATIVE: CASE EVENT DATE: 20160214
